FAERS Safety Report 4341453-7 (Version None)
Quarter: 2004Q2

REPORT INFORMATION
  Report Type: 
  Country: None (occurrence: None)
  Receive Date: 20040419
  Receipt Date: 20040408
  Transmission Date: 20050107
  Serious: No
  Sender: FDA-Public Use
  Company Number: 7800

PATIENT
  Sex: Female

DRUGS (2)
  1. AMIODARONE HCL [Suspect]
     Dosage: NI; UNK
     Route: 065
  2. NEVIRAPINE [Suspect]
     Dosage: NI, UNK
     Route: 065

REACTIONS (3)
  - DELUSION [None]
  - DRUG INTERACTION [None]
  - PARANOIA [None]
